FAERS Safety Report 5782452-8 (Version None)
Quarter: 2008Q2

REPORT INFORMATION
  Report Type: 
  Country: None (occurrence: None)
  Receive Date: 20080623
  Receipt Date: 20080617
  Transmission Date: 20081010
  Serious: Yes (Death, Hospitalization, Other)
  Sender: FDA-Public Use
  Company Number: PHHY2008JP00891

PATIENT
  Sex: Female
  Weight: 64 kg

DRUGS (8)
  1. ZOMETA [Suspect]
     Indication: METASTASES TO BONE
     Dosage: 4 MG/DAY
     Route: 042
     Dates: start: 20060829, end: 20070731
  2. TAXOTERE [Concomitant]
     Dosage: 125.6MG/M2
     Route: 042
     Dates: start: 20070306, end: 20071112
  3. DECADRON [Concomitant]
     Dosage: 8 MG/DAY
     Route: 042
     Dates: start: 20070306, end: 20071112
  4. DECADRON [Concomitant]
     Dosage: 8 MG/DAY
     Route: 048
     Dates: start: 20070303, end: 20070825
  5. ZANTAC [Concomitant]
     Dosage: 50 MG/DAY
     Route: 042
     Dates: start: 20070306, end: 20071112
  6. NOVAMIN [Concomitant]
     Dosage: 15 MG/ DAY
     Route: 048
     Dates: start: 20070306, end: 20070825
  7. FAMOTIDINE [Concomitant]
  8. KYTRIL [Concomitant]
     Dosage: 1 MG/DAY
     Route: 048
     Dates: start: 20070327, end: 20070825

REACTIONS (17)
  - ABDOMINAL PAIN [None]
  - CACHEXIA [None]
  - GINGIVITIS [None]
  - HAEMATOCRIT DECREASED [None]
  - HAEMOGLOBIN DECREASED [None]
  - HEPATIC FAILURE [None]
  - METASTASES TO LIVER [None]
  - ORAL SURGERY [None]
  - OSTEOMYELITIS [None]
  - OSTEONECROSIS [None]
  - PAIN [None]
  - PURULENT DISCHARGE [None]
  - PYREXIA [None]
  - RED BLOOD CELL COUNT DECREASED [None]
  - SWELLING [None]
  - TOOTH ABSCESS [None]
  - TOOTH EXTRACTION [None]
